FAERS Safety Report 21576043 (Version 3)
Quarter: 2023Q1

REPORT INFORMATION
  Report Type: Spontaneous
  Country: AR (occurrence: AR)
  Receive Date: 20221110
  Receipt Date: 20230106
  Transmission Date: 20230418
  Serious: Yes (Other)
  Sender: FDA-Public Use
  Company Number: AR-PFIZER INC-PV202200098499

PATIENT
  Age: 71 Year
  Sex: Female

DRUGS (1)
  1. ENBREL [Suspect]
     Active Substance: ETANERCEPT
     Indication: Rheumatoid arthritis
     Dosage: 50 MILLIGRAM, QWK
     Route: 065
     Dates: start: 20101102

REACTIONS (3)
  - Cataract [Not Recovered/Not Resolved]
  - Eye ulcer [Not Recovered/Not Resolved]
  - Corneal perforation [Not Recovered/Not Resolved]

NARRATIVE: CASE EVENT DATE: 20220101
